FAERS Safety Report 9060810 (Version 3)
Quarter: 2013Q2

REPORT INFORMATION
  Report Type: Spontaneous
  Country: US (occurrence: US)
  Receive Date: 20130204
  Receipt Date: 20130419
  Transmission Date: 20140414
  Serious: No
  Sender: FDA-Public Use
  Company Number: US-009507513-1302USA000697

PATIENT
  Sex: Female
  Weight: 73.47 kg

DRUGS (6)
  1. SAPHRIS [Suspect]
     Indication: ANXIETY
     Dosage: UNK
     Route: 060
     Dates: end: 20130130
  2. SAPHRIS [Suspect]
     Dosage: UNK
     Dates: start: 20130212
  3. CYMBALTA [Concomitant]
     Indication: SLEEP DISORDER
  4. CYMBALTA [Concomitant]
     Indication: ANXIETY
  5. KLONOPIN [Concomitant]
     Indication: SLEEP DISORDER
  6. KLONOPIN [Concomitant]
     Indication: ANXIETY

REACTIONS (7)
  - Fluid retention [Recovering/Resolving]
  - Local swelling [Not Recovered/Not Resolved]
  - Local swelling [Not Recovered/Not Resolved]
  - Face oedema [Not Recovered/Not Resolved]
  - Abdominal distension [Not Recovered/Not Resolved]
  - Depression [Unknown]
  - Weight increased [Not Recovered/Not Resolved]
